FAERS Safety Report 4420946-8 (Version None)
Quarter: 2004Q3

REPORT INFORMATION
  Report Type: 
  Country: None (occurrence: None)
  Receive Date: 20040809
  Receipt Date: 20040728
  Transmission Date: 20050211
  Serious: Yes (Hospitalization)
  Sender: FDA-Public Use
  Company Number: US-JNJFOC-20040206159

PATIENT
  Sex: Female
  Weight: 61.24 kg

DRUGS (12)
  1. REMICADE [Suspect]
     Route: 042
  2. REMICADE [Suspect]
     Route: 042
  3. REMICADE [Suspect]
     Indication: RHEUMATOID ARTHRITIS
     Route: 042
  4. METHOTREXATE [Concomitant]
     Indication: RHEUMATOID ARTHRITIS
     Route: 030
  5. MEDROL [Concomitant]
     Indication: RHEUMATOID ARTHRITIS
     Route: 049
  6. PLAQUENIL [Concomitant]
     Indication: RHEUMATOID ARTHRITIS
     Route: 049
  7. PRILOSEC [Concomitant]
  8. ZOLOFT [Concomitant]
  9. FOLIC ACID [Concomitant]
  10. PREMPHASE 14/14 [Concomitant]
  11. PREMPHASE 14/14 [Concomitant]
  12. VALTREX [Concomitant]

REACTIONS (3)
  - IMPLANT SITE INFECTION [None]
  - KNEE OPERATION [None]
  - STAPHYLOCOCCAL INFECTION [None]
